FAERS Safety Report 8405044-0 (Version None)
Quarter: 2012Q2

REPORT INFORMATION
  Report Type: 
  Country: None (occurrence: None)
  Receive Date: 20120601
  Receipt Date: 20120104
  Transmission Date: 20120825
  Serious: No
  Sender: FDA-Public Use
  Company Number: US-NOVEN-12US003880

PATIENT
  Sex: Male

DRUGS (3)
  1. LAMICTAL [Concomitant]
     Indication: AUTISM
     Route: 048
  2. DAYTRANA [Suspect]
     Indication: PRODUCT USED FOR UNKNOWN INDICATION
     Dosage: 10 MG, UNK
     Route: 062
     Dates: start: 20111224
  3. ABILIFY [Concomitant]
     Indication: AUTISM
     Route: 048

REACTIONS (4)
  - INSOMNIA [None]
  - OBSESSIVE-COMPULSIVE DISORDER [None]
  - IRRITABILITY [None]
  - DECREASED APPETITE [None]
